FAERS Safety Report 20820104 (Version 7)
Quarter: 2022Q4

REPORT INFORMATION
  Report Type: Spontaneous
  Country: JP (occurrence: JP)
  Receive Date: 20220512
  Receipt Date: 20221019
  Transmission Date: 20230113
  Serious: Yes (Other)
  Sender: FDA-Public Use
  Company Number: JP-JNJFOC-20220523128

PATIENT
  Age: 54 Year
  Sex: Male
  Weight: 57 kg

DRUGS (3)
  1. TREMFYA [Suspect]
     Active Substance: GUSELKUMAB
     Indication: Psoriasis
     Dosage: EVERY 4 TO 8 WEEKS
     Route: 058
     Dates: start: 20181122, end: 20211206
  2. TREMFYA [Suspect]
     Active Substance: GUSELKUMAB
  3. REMICADE [Suspect]
     Active Substance: INFLIXIMAB
     Indication: Psoriasis
     Dosage: DOSE UNKNOWN
     Route: 041
     Dates: start: 20180810, end: 20180824

REACTIONS (2)
  - Myelodysplastic syndrome [Not Recovered/Not Resolved]
  - Hepatic function abnormal [Recovered/Resolved]

NARRATIVE: CASE EVENT DATE: 20210913
